FAERS Safety Report 14073133 (Version 2)
Quarter: 2017Q4

REPORT INFORMATION
  Report Type: Report from Study
  Country: JP (occurrence: JP)
  Receive Date: 20171011
  Receipt Date: 20171106
  Transmission Date: 20180321
  Serious: Yes (Other)
  Sender: FDA-Public Use
  Company Number: JP-ASTELLAS-2017JP018200

PATIENT
  Age: 38 Year
  Sex: Female
  Weight: 33 kg

DRUGS (25)
  1. MEROPENEM                          /01250502/ [Suspect]
     Active Substance: MEROPENEM
     Indication: FEBRILE NEUTROPENIA
     Route: 041
     Dates: start: 20170914, end: 20170916
  2. BESOFTEN [Concomitant]
     Active Substance: PENTOSAN POLYSULFATE SODIUM
     Indication: XERODERMA
     Route: 061
     Dates: start: 20170628
  3. GLUCONSAN K [Concomitant]
     Active Substance: POTASSIUM GLUCONATE
     Indication: PROPHYLAXIS
     Route: 048
     Dates: start: 20170914
  4. CEFEPIME [Concomitant]
     Active Substance: CEFEPIME HYDROCHLORIDE
     Indication: FEBRILE NEUTROPENIA
     Route: 065
     Dates: start: 20170905, end: 20170910
  5. PARIET [Concomitant]
     Active Substance: RABEPRAZOLE SODIUM
     Indication: PROPHYLAXIS AGAINST GASTROINTESTINAL ULCER
     Route: 048
     Dates: start: 20170627
  6. CYTARABINE. [Concomitant]
     Active Substance: CYTARABINE
     Indication: ACUTE MYELOID LEUKAEMIA
     Route: 065
     Dates: start: 20170630, end: 20170706
  7. VANCOMYCIN [Concomitant]
     Active Substance: VANCOMYCIN
     Indication: PRODUCT USED FOR UNKNOWN INDICATION
     Route: 065
     Dates: start: 20170906
  8. SOLDEM 3A [Concomitant]
     Active Substance: CARBOHYDRATES\POTASSIUM CHLORIDE\SODIUM CHLORIDE\SODIUM LACTATE
     Indication: PROPHYLAXIS AGAINST DEHYDRATION
     Route: 041
     Dates: start: 20171002
  9. ASP2215 [Suspect]
     Active Substance: GILTERITINIB
     Route: 048
     Dates: start: 20170825, end: 20170907
  10. AZ                                 /00317303/ [Concomitant]
     Indication: PROPHYLAXIS
     Route: 061
     Dates: start: 20170822
  11. SOLDEM 1 [Concomitant]
     Active Substance: DEXTROSE\SODIUM CHLORIDE\SODIUM LACTATE
     Indication: PROPHYLAXIS AGAINST DEHYDRATION
     Route: 041
     Dates: start: 20171002
  12. KCL CORRECTIVE [Concomitant]
     Indication: HYPOKALAEMIA
     Route: 041
     Dates: start: 20171002
  13. ASP2215 [Suspect]
     Active Substance: GILTERITINIB
     Indication: ACUTE MYELOID LEUKAEMIA
     Route: 048
     Dates: start: 20170703, end: 20170716
  14. AMBISOME [Suspect]
     Active Substance: AMPHOTERICIN B
     Dosage: 3.0 MG/KG, ONCE DAILY
     Route: 041
     Dates: start: 20170926, end: 20171001
  15. AMBISOME [Suspect]
     Active Substance: AMPHOTERICIN B
     Dosage: 5.0 MG/KG, ONCE DAILY
     Route: 041
     Dates: start: 20171002, end: 20171002
  16. AMBISOME [Suspect]
     Active Substance: AMPHOTERICIN B
     Dosage: 4.0 MG/KG, ONCE DAILY
     Route: 041
     Dates: start: 20171003
  17. CANCIDAS [Concomitant]
     Active Substance: CASPOFUNGIN ACETATE
     Indication: INFECTION PROPHYLAXIS
     Route: 041
     Dates: start: 20170825, end: 20171023
  18. CYTARABINE. [Concomitant]
     Active Substance: CYTARABINE
     Dosage: 1.5 G/M2, TWICE DAILY
     Route: 065
     Dates: start: 20170825, end: 20170825
  19. CYTARABINE. [Concomitant]
     Active Substance: CYTARABINE
     Dosage: 1.5 G/M2, TWICE DAILY
     Route: 065
     Dates: start: 20170827, end: 20170827
  20. CYTARABINE. [Concomitant]
     Active Substance: CYTARABINE
     Dosage: 1.5 G/M2, TWICE DAILY
     Route: 065
     Dates: start: 20170829, end: 20170829
  21. PIPERACILIN/TAZOBACTAM [Concomitant]
     Active Substance: PIPERACILLIN SODIUM\TAZOBACTAM SODIUM
     Indication: FEBRILE NEUTROPENIA
     Route: 065
     Dates: start: 20170911, end: 20170913
  22. FINIBAX [Concomitant]
     Active Substance: DORIPENEM MONOHYDRATE
     Indication: FEBRILE NEUTROPENIA
     Dosage: 0.5 MG, THRICE DAILY
     Route: 041
     Dates: start: 20170916
  23. AMBISOME [Suspect]
     Active Substance: AMPHOTERICIN B
     Indication: PNEUMONIA
     Route: 041
     Dates: start: 20170922, end: 20170925
  24. MIYA-BM [Concomitant]
     Active Substance: CLOSTRIDIUM BUTYRICUM SPORES STRAIN M-55
     Indication: LIVER FUNCTION TEST ABNORMAL
     Route: 048
     Dates: start: 20170916
  25. HISHIPHAGEN C [Concomitant]
     Indication: LIVER FUNCTION TEST ABNORMAL
     Route: 041
     Dates: start: 20170904

REACTIONS (2)
  - Liver function test abnormal [Not Recovered/Not Resolved]
  - Liver function test abnormal [Recovered/Resolved]

NARRATIVE: CASE EVENT DATE: 20170916
